FAERS Safety Report 24586301 (Version 3)
Quarter: 2025Q2

REPORT INFORMATION
  Report Type: Spontaneous
  Country: US (occurrence: US)
  Receive Date: 20241106
  Receipt Date: 20250528
  Transmission Date: 20250716
  Serious: Yes (Life-Threatening, Hospitalization, Other)
  Sender: SANDOZ
  Company Number: US-SANDOZ-SDZ2023US042485

PATIENT
  Age: 45 Year
  Sex: Male

DRUGS (20)
  1. FENTANYL [Suspect]
     Active Substance: FENTANYL
     Route: 065
  2. FENTANYL [Suspect]
     Active Substance: FENTANYL
     Route: 065
  3. FENTANYL [Suspect]
     Active Substance: FENTANYL
     Indication: Sedation
     Route: 042
  4. SUBOXONE [Suspect]
     Active Substance: BUPRENORPHINE HYDROCHLORIDE\NALOXONE HYDROCHLORIDE
     Indication: Drug use disorder
     Dosage: 16 MG, QD
     Route: 065
  5. SUBOXONE [Suspect]
     Active Substance: BUPRENORPHINE HYDROCHLORIDE\NALOXONE HYDROCHLORIDE
     Dosage: 4 MG, QD
     Route: 065
  6. SUBOXONE [Suspect]
     Active Substance: BUPRENORPHINE HYDROCHLORIDE\NALOXONE HYDROCHLORIDE
     Route: 065
  7. AZITHROMYCIN [Concomitant]
     Active Substance: AZITHROMYCIN
     Indication: Product used for unknown indication
     Route: 048
  8. CEFTRIAXONE [Concomitant]
     Active Substance: CEFTRIAXONE
     Indication: Product used for unknown indication
     Route: 042
  9. FENTANYL [Concomitant]
     Active Substance: FENTANYL
     Indication: Analgesic therapy
     Route: 065
  10. PROPOFOL [Concomitant]
     Active Substance: PROPOFOL
     Route: 065
  11. PROPOFOL [Concomitant]
     Active Substance: PROPOFOL
     Route: 065
  12. PROPOFOL [Concomitant]
     Active Substance: PROPOFOL
     Route: 065
  13. PROPOFOL [Concomitant]
     Active Substance: PROPOFOL
     Route: 065
  14. PROPOFOL [Concomitant]
     Active Substance: PROPOFOL
     Route: 065
  15. PROPOFOL [Concomitant]
     Active Substance: PROPOFOL
     Route: 065
  16. PROPOFOL [Concomitant]
     Active Substance: PROPOFOL
     Indication: Sedation
     Route: 065
  17. PROPOFOL [Concomitant]
     Active Substance: PROPOFOL
     Route: 065
  18. PROPOFOL [Concomitant]
     Active Substance: PROPOFOL
     Route: 065
  19. AMITRIPTYLINE [Interacting]
     Active Substance: AMITRIPTYLINE
     Indication: Drug use disorder
     Dosage: 75 MG, QD
     Route: 065
  20. PREGABALIN [Interacting]
     Active Substance: PREGABALIN
     Indication: Drug use disorder
     Dosage: 200 MG THREE TIMES A DAY FOR SEVERAL WEEKS
     Route: 065

REACTIONS (3)
  - Mental status changes [Recovering/Resolving]
  - Serotonin syndrome [Recovered/Resolved]
  - Drug interaction [Recovering/Resolving]
